FAERS Safety Report 22240465 (Version 2)
Quarter: 2023Q2

REPORT INFORMATION
  Report Type: Report from Study
  Country: JP (occurrence: JP)
  Receive Date: 20230421
  Receipt Date: 20230426
  Transmission Date: 20230722
  Serious: Yes (Other)
  Sender: FDA-Public Use
  Company Number: JP-DSJP-DSJ-2023-115477

PATIENT

DRUGS (3)
  1. PRASUGREL HYDROCHLORIDE [Suspect]
     Active Substance: PRASUGREL HYDROCHLORIDE
     Indication: Acute myocardial infarction
     Dosage: 20MG/DAY
     Route: 065
  2. PRASUGREL HYDROCHLORIDE [Suspect]
     Active Substance: PRASUGREL HYDROCHLORIDE
     Dosage: 3.75MG/DAY
     Route: 065
  3. ASPIRIN [Suspect]
     Active Substance: ASPIRIN
     Dosage: 100MG/DAY
     Route: 065

REACTIONS (1)
  - Bladder tamponade [Unknown]
